FAERS Safety Report 6745586-7 (Version None)
Quarter: 2010Q2

REPORT INFORMATION
  Report Type: 
  Country: None (occurrence: None)
  Receive Date: 20100528
  Receipt Date: 20100525
  Transmission Date: 20101027
  Serious: Yes (Other)
  Sender: FDA-Public Use
  Company Number: PL-BAXTER-2010BH014226

PATIENT
  Age: 50 Year
  Sex: Female

DRUGS (1)
  1. TISSEEL VH KIT [Suspect]
     Indication: INTRACRANIAL HYPOTENSION
     Route: 061
     Dates: start: 20100518, end: 20100518

REACTIONS (1)
  - DRUG EFFECT DELAYED [None]
